FAERS Safety Report 11031608 (Version 1)
Quarter: 2015Q2

REPORT INFORMATION
  Report Type: Spontaneous
  Country: US (occurrence: None)
  Receive Date: 20150414
  Receipt Date: 20150414
  Transmission Date: 20150821
  Serious: Yes (Disabling, Other)
  Sender: FDA-Public Use
  Company Number: None

PATIENT
  Age: 57 Year
  Sex: Female
  Weight: 70.31 kg

DRUGS (5)
  1. FLONASE [Suspect]
     Active Substance: FLUTICASONE PROPIONATE
     Indication: MULTIPLE ALLERGIES
     Dosage: ONE SPRAY, ONCE DAILY, INHALATION ?
     Route: 055
     Dates: start: 20150406, end: 20150409
  2. DIOVAN [Concomitant]
     Active Substance: VALSARTAN
  3. HCTZ [Concomitant]
     Active Substance: HYDROCHLOROTHIAZIDE
  4. MUCINEX [Concomitant]
     Active Substance: GUAIFENESIN
  5. NORTRIPTYLINE [Concomitant]
     Active Substance: NORTRIPTYLINE

REACTIONS (4)
  - Throat irritation [None]
  - Fibromyalgia [None]
  - Migraine [None]
  - Vitreous floaters [None]

NARRATIVE: CASE EVENT DATE: 20150406
